FAERS Safety Report 22322527 (Version 1)
Quarter: 2023Q2

REPORT INFORMATION
  Report Type: Spontaneous
  Country: US (occurrence: US)
  Receive Date: 20230516
  Receipt Date: 20230516
  Transmission Date: 20230721
  Serious: Yes (Hospitalization, Other)
  Sender: FDA-Public Use
  Company Number: US-NOVOPROD-1057820

PATIENT
  Age: 62 Year
  Sex: Female

DRUGS (1)
  1. LEVEMIR [Suspect]
     Active Substance: INSULIN DETEMIR
     Indication: Type 2 diabetes mellitus
     Dosage: 18 IU, QD
     Route: 058
     Dates: start: 2009

REACTIONS (7)
  - Oesophageal ulcer haemorrhage [Recovered/Resolved]
  - Renal failure [Not Recovered/Not Resolved]
  - Dehydration [Unknown]
  - Blood glucose increased [Not Recovered/Not Resolved]
  - Injection site discharge [Unknown]
  - Diarrhoea [Unknown]
  - Vomiting [Unknown]

NARRATIVE: CASE EVENT DATE: 20090101
